FAERS Safety Report 8222705-7 (Version None)
Quarter: 2012Q1

REPORT INFORMATION
  Report Type: 
  Country: None (occurrence: None)
  Receive Date: 20120320
  Receipt Date: 20120308
  Transmission Date: 20120608
  Serious: Yes (Other)
  Sender: FDA-Public Use
  Company Number: US-ELI_LILLY_AND_COMPANY-US201203002934

PATIENT
  Sex: Female

DRUGS (2)
  1. FORTEO [Suspect]
     Indication: OSTEOPOROSIS
     Dosage: 20 UG, QD
     Dates: start: 20120202, end: 20120303
  2. BISPHOSPHONATES [Concomitant]

REACTIONS (3)
  - INTENTIONAL DRUG MISUSE [None]
  - URTICARIA [None]
  - FEMUR FRACTURE [None]
